FAERS Safety Report 15714318 (Version 2)
Quarter: 2019Q1

REPORT INFORMATION
  Report Type: Spontaneous
  Country: US (occurrence: US)
  Receive Date: 20181212
  Receipt Date: 20190301
  Transmission Date: 20190417
  Serious: Yes (Other)
  Sender: FDA-Public Use
  Company Number: US-SA-2018SA334364

PATIENT
  Age: 39 Year
  Sex: Female
  Weight: 62 kg

DRUGS (4)
  1. CARBOPLATIN. [Concomitant]
     Active Substance: CARBOPLATIN
  2. TAXOTERE [Suspect]
     Active Substance: DOCETAXEL
     Dosage: UNK MG, 128-134 MG EVERY 3-4 WEEK
     Route: 042
     Dates: start: 20111013, end: 20111013
  3. TAXOTERE [Suspect]
     Active Substance: DOCETAXEL
     Indication: BREAST CANCER FEMALE
     Dosage: UNK MG, 128-134 MG EVERY 3-4 WEEK
     Route: 042
     Dates: start: 20110224, end: 20110224
  4. PARAPLATIN [Concomitant]
     Active Substance: CARBOPLATIN

REACTIONS (6)
  - Emotional distress [Unknown]
  - Impaired quality of life [Unknown]
  - Alopecia [Recovering/Resolving]
  - Anxiety [Unknown]
  - Psychological trauma [Unknown]
  - Pain [Unknown]

NARRATIVE: CASE EVENT DATE: 20120414
